FAERS Safety Report 24592105 (Version 1)
Quarter: 2024Q4

REPORT INFORMATION
  Report Type: Spontaneous
  Country: CN (occurrence: CN)
  Receive Date: 20241108
  Receipt Date: 20241108
  Transmission Date: 20250115
  Serious: Yes (Other)
  Sender: SHENZHEN TECHDOW PHARMACEUTICAL
  Company Number: CN-91440300279544901A-J2024HPR000663

PATIENT
  Age: 77 Year
  Sex: Female
  Weight: 42 kg

DRUGS (1)
  1. ENOXAPARIN SODIUM [Suspect]
     Active Substance: ENOXAPARIN SODIUM
     Indication: Deep vein thrombosis
     Dosage: 4000IU,EVERY 12 HOURS
     Dates: start: 20241008, end: 20241013

REACTIONS (6)
  - Muscle haemorrhage [Recovering/Resolving]
  - Pelvic fluid collection [Recovering/Resolving]
  - Intra-abdominal fluid collection [Recovering/Resolving]
  - Pelvic haemorrhage [Recovering/Resolving]
  - Haemoperitoneum [Recovering/Resolving]
  - Muscle swelling [Recovering/Resolving]

NARRATIVE: CASE EVENT DATE: 20241013
